FAERS Safety Report 12692658 (Version 1)
Quarter: 2016Q3

REPORT INFORMATION
  Report Type: Spontaneous
  Country: US (occurrence: None)
  Receive Date: 20160826
  Receipt Date: 20160826
  Transmission Date: 20161109
  Serious: Yes (Hospitalization)
  Sender: FDA-Public Use
  Company Number: None

PATIENT
  Age: 39 Year
  Sex: Male

DRUGS (2)
  1. LANTUS SOLOSTAR [Suspect]
     Active Substance: INSULIN GLARGINE
     Indication: CYSTIC FIBROSIS
     Route: 058
     Dates: start: 20150515
  2. PROAIR HFA [Suspect]
     Active Substance: ALBUTEROL SULFATE
     Indication: CYSTIC FIBROSIS
     Route: 055
     Dates: start: 20150515

REACTIONS (2)
  - Condition aggravated [None]
  - Cystic fibrosis [None]
